FAERS Safety Report 19264450 (Version 1)
Quarter: 2021Q2

REPORT INFORMATION
  Report Type: Spontaneous
  Country: US (occurrence: US)
  Receive Date: 20210517
  Receipt Date: 20210517
  Transmission Date: 20210717
  Serious: Yes (Life-Threatening)
  Sender: FDA-Public Use
  Company Number: None

PATIENT
  Age: 89 Year
  Sex: Female

DRUGS (2)
  1. DILTIAZEM INFUSION [Suspect]
     Active Substance: DILTIAZEM
     Indication: ATRIAL FIBRILLATION
     Dosage: ?          OTHER FREQUENCY:MG/H DRIP;?
     Route: 041
     Dates: start: 20210513, end: 20210513
  2. DEXMEDETOMIDINE INFUSION [Suspect]
     Active Substance: DEXMEDETOMIDINE
     Indication: SEDATION
     Dosage: ?          OTHER FREQUENCY:MCG/KG/H DRIP;?
     Route: 041
     Dates: start: 20210513, end: 20210513

REACTIONS (3)
  - Cardiac arrest [None]
  - Bradycardia [None]
  - Atrial fibrillation [None]

NARRATIVE: CASE EVENT DATE: 20210513
